FAERS Safety Report 4439580-9 (Version None)
Quarter: 2004Q3

REPORT INFORMATION
  Report Type: 
  Country: None (occurrence: None)
  Receive Date: 20040830
  Receipt Date: 20040819
  Transmission Date: 20050211
  Serious: Yes (Life-Threatening)
  Sender: FDA-Public Use
  Company Number: GBWYE993423AUG04

PATIENT
  Age: 23 Year
  Sex: Male

DRUGS (2)
  1. EFFEXOR [Suspect]
     Indication: DEPRESSION
     Dosage: 75 MG
     Route: 048
  2. ALCOHOL (ETHANOL, , 0) [Suspect]

REACTIONS (4)
  - DRUG WITHDRAWAL SYNDROME [None]
  - HAEMORRHAGE [None]
  - INTENTIONAL SELF-INJURY [None]
  - LACERATION [None]
